FAERS Safety Report 9222627 (Version 5)
Quarter: 2013Q4

REPORT INFORMATION
  Report Type: Spontaneous
  Country: US (occurrence: US)
  Receive Date: 20130410
  Receipt Date: 20131129
  Transmission Date: 20140711
  Serious: Yes (Disabling, Other)
  Sender: FDA-Public Use
  Company Number: US-PFIZER INC-2006034097

PATIENT
  Age: 49 Year
  Sex: Female
  Weight: 80.27 kg

DRUGS (4)
  1. CELEBREX [Suspect]
     Dosage: 200 MG, BID
  2. ENBREL [Suspect]
     Dosage: UNK
     Dates: end: 20091209
  3. METHOTREXATE SODIUM [Suspect]
     Indication: RHEUMATOID ARTHRITIS
     Dosage: 3.5 MG, QD
  4. METHOTREXATE SODIUM [Suspect]
     Dosage: 2.5 MG, DAILY

REACTIONS (11)
  - Adenocarcinoma [Recovering/Resolving]
  - Asthenia [Unknown]
  - White blood cell count decreased [Unknown]
  - Tearfulness [Unknown]
  - Arthralgia [Unknown]
  - Feeling abnormal [Unknown]
  - Nasopharyngitis [Not Recovered/Not Resolved]
  - Cough [Unknown]
  - Vomiting [Not Recovered/Not Resolved]
  - Burning sensation [Unknown]
  - Cognitive disorder [Unknown]
